FAERS Safety Report 8817005 (Version 1)
Quarter: 2012Q4

REPORT INFORMATION
  Report Type: Spontaneous
  Country: US (occurrence: None)
  Receive Date: 20121002
  Receipt Date: 20121002
  Transmission Date: 20130627
  Serious: No
  Sender: FDA-Public Use
  Company Number: None

PATIENT
  Sex: Female
  Weight: 73.48 kg

DRUGS (1)
  1. SEASONIQUE [Suspect]
     Indication: MENORRHAGIA
     Dosage: 0.15-0.30/.01mg po, daily
     Route: 048

REACTIONS (1)
  - Menometrorrhagia [None]
